FAERS Safety Report 9157547 (Version 1)
Quarter: 2013Q1

REPORT INFORMATION
  Report Type: Spontaneous
  Country: US (occurrence: None)
  Receive Date: 20130219
  Receipt Date: 20130219
  Transmission Date: 20140127
  Serious: Yes (Hospitalization, Other)
  Sender: FDA-Public Use
  Company Number: TPA2013A01489

PATIENT
  Age: 75 Year
  Sex: Female

DRUGS (1)
  1. ACTOS [Suspect]
     Indication: DIABETES MELLITUS

REACTIONS (4)
  - Myocardial infarction [None]
  - Hyperhidrosis [None]
  - Blood glucose decreased [None]
  - Upper limb fracture [None]
